FAERS Safety Report 5904295-4 (Version None)
Quarter: 2008Q4

REPORT INFORMATION
  Report Type: 
  Country: None (occurrence: None)
  Receive Date: 20081001
  Receipt Date: 20080703
  Transmission Date: 20090506
  Serious: No
  Sender: FDA-Public Use
  Company Number: US-BRISTOL-MYERS SQUIBB COMPANY-14249338

PATIENT
  Age: 39 Year
  Sex: Female
  Weight: 69 kg

DRUGS (1)
  1. SPRYCEL [Suspect]
     Indication: CHRONIC MYELOID LEUKAEMIA
     Dosage: INITIATED WITH 70MG,BID; DECREASED TO 100MG QD AND TEMPORARILY DISCONTINUED

REACTIONS (1)
  - WEIGHT DECREASED [None]
